FAERS Safety Report 14199703 (Version 3)
Quarter: 2017Q4

REPORT INFORMATION
  Report Type: Spontaneous
  Country: JP (occurrence: JP)
  Receive Date: 20171117
  Receipt Date: 20171205
  Transmission Date: 20180321
  Serious: Yes (Other)
  Sender: FDA-Public Use
  Company Number: JP-PFIZER INC-2017490790

PATIENT
  Age: 97 Year
  Sex: Female

DRUGS (4)
  1. CRAVIT [Suspect]
     Active Substance: LEVOFLOXACIN
     Indication: BACK PAIN
  2. LOXONIN [Suspect]
     Active Substance: LOXOPROFEN SODIUM
     Indication: BACK PAIN
     Dosage: 60 MG, 1X/DAY
  3. CRAVIT [Suspect]
     Active Substance: LEVOFLOXACIN
     Indication: UPPER RESPIRATORY TRACT INFECTION
     Dosage: 100 MG, 1X/DAY
  4. LOXONIN [Suspect]
     Active Substance: LOXOPROFEN SODIUM
     Indication: UPPER RESPIRATORY TRACT INFECTION

REACTIONS (2)
  - Seizure [Unknown]
  - Stress cardiomyopathy [Unknown]
